FAERS Safety Report 5945473-8 (Version None)
Quarter: 2008Q4

REPORT INFORMATION
  Report Type: 
  Country: None (occurrence: None)
  Receive Date: 20081107
  Receipt Date: 20081031
  Transmission Date: 20090506
  Serious: Yes (Death, Hospitalization)
  Sender: FDA-Public Use
  Company Number: US-PFIZER INC-2008088669

PATIENT
  Sex: Male
  Weight: 93.1 kg

DRUGS (11)
  1. SU-011,248 [Suspect]
     Indication: PROSTATE CANCER
     Route: 048
     Dates: start: 20080704, end: 20081018
  2. TAXOTERE [Suspect]
     Indication: PROSTATE CANCER
     Route: 042
     Dates: start: 20080704, end: 20081010
  3. PREDNISONE TAB [Suspect]
     Indication: PROSTATE CANCER
     Route: 048
     Dates: start: 20080704, end: 20081018
  4. ADVAIR DISKUS 100/50 [Concomitant]
     Route: 048
     Dates: start: 19950101
  5. ACETYLSALICYLIC ACID SRT [Concomitant]
     Route: 048
     Dates: start: 20000101
  6. CILOSTAZOL [Concomitant]
     Route: 048
     Dates: start: 19930101
  7. GLIPIZIDE [Concomitant]
     Route: 048
     Dates: start: 19930101
  8. LIPITOR [Concomitant]
     Route: 048
     Dates: start: 19930101
  9. LISINOPRIL [Concomitant]
     Route: 048
     Dates: start: 19930101
  10. MAGNESIUM OXIDE [Concomitant]
     Route: 048
     Dates: start: 20080407
  11. METFORMIN HCL [Concomitant]
     Route: 048
     Dates: start: 19930101

REACTIONS (4)
  - DEATH [None]
  - HAEMODIALYSIS [None]
  - PNEUMONIA [None]
  - RENAL FAILURE [None]
